FAERS Safety Report 5055801-6 (Version None)
Quarter: 2006Q3

REPORT INFORMATION
  Report Type: 
  Country: None (occurrence: None)
  Receive Date: 20060718
  Receipt Date: 20060718
  Transmission Date: 20061208
  Serious: Yes (Life-Threatening, Hospitalization)
  Sender: FDA-Public Use
  Company Number: None

PATIENT
  Sex: Male
  Weight: 95.2554 kg

DRUGS (2)
  1. CYCLOBENZAPRINE HCL [Suspect]
     Indication: ANTIINFLAMMATORY THERAPY
     Dosage: ONE TABLET 3 TIMES A DAY ORAL
     Route: 048
     Dates: start: 20060606, end: 20060614
  2. HYDROCODONE BITARTRATE + ACETAMINOPHEN [Concomitant]

REACTIONS (7)
  - BLOOD PRESSURE INCREASED [None]
  - DYSPNOEA [None]
  - FACIAL PALSY [None]
  - HEART RATE INCREASED [None]
  - HYPOAESTHESIA [None]
  - NAUSEA [None]
  - OCULAR HYPERAEMIA [None]
